FAERS Safety Report 16958859 (Version 1)
Quarter: 2019Q4

REPORT INFORMATION
  Report Type: Spontaneous
  Country: AU (occurrence: AU)
  Receive Date: 20191024
  Receipt Date: 20191024
  Transmission Date: 20200122
  Serious: Yes (Other)
  Sender: FDA-Public Use
  Company Number: AU-PFM-2019-12724

PATIENT

DRUGS (3)
  1. NAVELBINE [Suspect]
     Active Substance: VINORELBINE TARTRATE
     Indication: LYMPHOMA
     Dosage: 54 MG
     Route: 042
     Dates: start: 20040423, end: 20040423
  2. GEMZAR [Suspect]
     Active Substance: GEMCITABINE HYDROCHLORIDE
     Indication: LYMPHOMA
     Dosage: 2 G, UNK
     Route: 042
     Dates: start: 20040423, end: 20040423
  3. IFOSFAMIDE. [Suspect]
     Active Substance: IFOSFAMIDE
     Indication: LYMPHOMA
     Dosage: 6 G, UNK
     Route: 042
     Dates: start: 20040423, end: 20040423

REACTIONS (5)
  - Product use in unapproved indication [Unknown]
  - Ataxia [Not Recovered/Not Resolved]
  - Off label use [Unknown]
  - Confusional state [Not Recovered/Not Resolved]
  - Encephalitis [Not Recovered/Not Resolved]

NARRATIVE: CASE EVENT DATE: 20040424
